FAERS Safety Report 6966221-9 (Version None)
Quarter: 2010Q3

REPORT INFORMATION
  Report Type: 
  Country: None (occurrence: None)
  Receive Date: 20100903
  Receipt Date: 20100824
  Transmission Date: 20110219
  Serious: Yes (Other)
  Sender: FDA-Public Use
  Company Number: US-ELI_LILLY_AND_COMPANY-US201008007254

PATIENT
  Sex: Male

DRUGS (5)
  1. ZYPREXA ZYDIS [Suspect]
     Indication: BIPOLAR DISORDER
     Dosage: 30 MG, DAILY (1/D)
  2. LITHIUM [Concomitant]
  3. ETHANOL [Concomitant]
  4. GEODON [Concomitant]
  5. CLONAZEPAM [Concomitant]

REACTIONS (14)
  - ABNORMAL BEHAVIOUR [None]
  - ANXIETY [None]
  - BLOOD PRESSURE INCREASED [None]
  - CONFUSIONAL STATE [None]
  - FEAR OF DEATH [None]
  - HALLUCINATION, AUDITORY [None]
  - HOSPITALISATION [None]
  - INTENTIONAL DRUG MISUSE [None]
  - OVERDOSE [None]
  - PALPITATIONS [None]
  - RESPIRATION ABNORMAL [None]
  - RESTLESSNESS [None]
  - SOMNOLENCE [None]
  - TACHYCARDIA [None]
